FAERS Safety Report 20153909 (Version 2)
Quarter: 2021Q4

REPORT INFORMATION
  Report Type: Spontaneous
  Country: US (occurrence: US)
  Receive Date: 20211207
  Receipt Date: 20211212
  Transmission Date: 20220303
  Serious: No
  Sender: FDA-Public Use
  Company Number: US-JNJFOC-20211206516

PATIENT
  Age: 86 Year
  Sex: Male

DRUGS (1)
  1. DARZALEX [Suspect]
     Active Substance: DARATUMUMAB
     Indication: Product used for unknown indication
     Route: 042

REACTIONS (7)
  - Infusion related reaction [Unknown]
  - Dyspnoea [Unknown]
  - Mouth swelling [Unknown]
  - Sneezing [Unknown]
  - Erythema [Unknown]
  - Eye pruritus [Unknown]
  - Lacrimation increased [Unknown]
